FAERS Safety Report 7079942-7 (Version None)
Quarter: 2010Q4

REPORT INFORMATION
  Report Type: 
  Country: None (occurrence: None)
  Receive Date: 20101102
  Receipt Date: 20101020
  Transmission Date: 20110411
  Serious: Yes (Hospitalization)
  Sender: FDA-Public Use
  Company Number: CO-BAXTER-2010BH027110

PATIENT
  Age: 44 Year
  Sex: Male
  Weight: 65 kg

DRUGS (6)
  1. DIANEAL [Suspect]
     Indication: PERITONEAL DIALYSIS
     Route: 033
     Dates: start: 20090622, end: 20101020
  2. MINOXIDIL [Concomitant]
     Indication: HYPERTENSION
     Route: 048
     Dates: start: 20100625
  3. METOPROLOL [Concomitant]
     Indication: HYPERTENSION
     Route: 048
     Dates: start: 20100625
  4. NIFEDIPINE [Concomitant]
     Indication: HYPERTENSION
     Route: 048
     Dates: start: 20100625
  5. FUROSEMIDE [Concomitant]
     Indication: HYPERTENSION
     Route: 048
     Dates: start: 20100625
  6. EPOGEN [Concomitant]
     Indication: ANAEMIA
     Route: 048
     Dates: start: 20100625

REACTIONS (2)
  - INGUINAL HERNIA [None]
  - NAUSEA [None]
